FAERS Safety Report 10508752 (Version 1)
Quarter: 2014Q4

REPORT INFORMATION
  Report Type: Spontaneous
  Country: US (occurrence: None)
  Receive Date: 20141008
  Receipt Date: 20141008
  Transmission Date: 20150528
  Serious: Yes (Hospitalization)
  Sender: FDA-Public Use
  Company Number: None

PATIENT
  Age: 45 Year
  Sex: Male
  Weight: 70.9 kg

DRUGS (1)
  1. TRAMADOL [Suspect]
     Active Substance: TRAMADOL
     Indication: PAIN
     Dosage: 50 MG  QID  PO?~02/21/2014 THRU ~03/28/2014
     Route: 048
     Dates: start: 20140221, end: 20140328

REACTIONS (4)
  - Seizure [None]
  - Vomiting [None]
  - Intentional overdose [None]
  - Headache [None]

NARRATIVE: CASE EVENT DATE: 20140328
